FAERS Safety Report 7197045-8 (Version None)
Quarter: 2010Q4

REPORT INFORMATION
  Report Type: 
  Country: None (occurrence: None)
  Receive Date: 20101224
  Receipt Date: 20101222
  Transmission Date: 20110411
  Serious: Yes (Death)
  Sender: FDA-Public Use
  Company Number: PHHY2010CA42616

PATIENT
  Sex: Female

DRUGS (6)
  1. ACLASTA [Suspect]
     Indication: OSTEOPOROSIS
     Dosage: UNK
     Route: 042
     Dates: start: 20090711
  2. ZOPICLONE [Concomitant]
  3. NORVASC [Concomitant]
  4. DIOVAN HCT [Concomitant]
  5. SYNTHROID [Concomitant]
  6. NEXIUM [Concomitant]

REACTIONS (1)
  - DEATH [None]
